FAERS Safety Report 13729325 (Version 3)
Quarter: 2018Q2

REPORT INFORMATION
  Report Type: Spontaneous
  Country: US (occurrence: US)
  Receive Date: 20170707
  Receipt Date: 20180412
  Transmission Date: 20180711
  Serious: Yes (Other)
  Sender: FDA-Public Use
  Company Number: US-BAYER-2017-125380

PATIENT
  Age: 22 Year
  Sex: Male

DRUGS (3)
  1. KOGENATE FS [Suspect]
     Active Substance: ANTIHEMOPHILIC FACTOR, HUMAN RECOMBINANT
     Indication: FACTOR VIII DEFICIENCY
     Dosage: 2000 U, EVERY OTHER DAY AND AS NEEDED FOR BLEEDING
     Route: 042
     Dates: start: 201709
  2. KOGENATE FS [Suspect]
     Active Substance: ANTIHEMOPHILIC FACTOR, HUMAN RECOMBINANT
     Indication: FACTOR VIII DEFICIENCY
     Dosage: 8 DF (TREATMENT FOR RIGHT KNEE BLEED)
  3. KOGENATE FS [Suspect]
     Active Substance: ANTIHEMOPHILIC FACTOR, HUMAN RECOMBINANT
     Indication: FACTOR VIII DEFICIENCY
     Dosage: 2000 U, QOD
     Route: 042
     Dates: start: 20170511

REACTIONS (3)
  - Treatment noncompliance [None]
  - Haemarthrosis [None]
  - Haemarthrosis [Unknown]

NARRATIVE: CASE EVENT DATE: 20171019
